FAERS Safety Report 7402503-4 (Version None)
Quarter: 2011Q2

REPORT INFORMATION
  Report Type: 
  Country: None (occurrence: None)
  Receive Date: 20110408
  Receipt Date: 20110405
  Transmission Date: 20111010
  Serious: Yes (Death, Other)
  Sender: FDA-Public Use
  Company Number: PHHY2011AR28520

PATIENT
  Sex: Female

DRUGS (1)
  1. DIOVAN [Suspect]
     Dosage: 1 DF, 160MG DAILY

REACTIONS (3)
  - ARRHYTHMIA [None]
  - PNEUMONIA [None]
  - CEREBROVASCULAR ACCIDENT [None]
